FAERS Safety Report 7445204-9 (Version None)
Quarter: 2011Q2

REPORT INFORMATION
  Report Type: 
  Country: None (occurrence: None)
  Receive Date: 20110429
  Receipt Date: 20110421
  Transmission Date: 20111010
  Serious: Yes (Other)
  Sender: FDA-Public Use
  Company Number: SE-JNJFOC-20110405313

PATIENT
  Age: 73 Year
  Sex: Female

DRUGS (3)
  1. NICORETTE NOVUM [Suspect]
     Route: 062
  2. NICORETTE NOVUM [Suspect]
     Indication: SMOKING CESSATION THERAPY
     Route: 062
  3. MABTHERA [Concomitant]
     Indication: MUSCULOSKELETAL PAIN
     Route: 042

REACTIONS (3)
  - APPLICATION SITE BURN [None]
  - APPLICATION SITE ERYTHEMA [None]
  - APPLICATION SITE SWELLING [None]
